FAERS Safety Report 8133822-4 (Version None)
Quarter: 2012Q1

REPORT INFORMATION
  Report Type: 
  Country: None (occurrence: None)
  Receive Date: 20120213
  Receipt Date: 20120213
  Transmission Date: 20120608
  Serious: Yes (Death)
  Sender: FDA-Public Use
  Company Number: None

PATIENT
  Sex: Female
  Weight: 86.182 kg

DRUGS (1)
  1. PRADAXA [Suspect]

REACTIONS (4)
  - ROAD TRAFFIC ACCIDENT [None]
  - OFF LABEL USE [None]
  - HAEMORRHAGE [None]
  - COAGULOPATHY [None]
